FAERS Safety Report 21407811 (Version 2)
Quarter: 2022Q4

REPORT INFORMATION
  Report Type: Spontaneous
  Country: US (occurrence: US)
  Receive Date: 20221004
  Receipt Date: 20221006
  Transmission Date: 20230113
  Serious: Yes (Other)
  Sender: FDA-Public Use
  Company Number: US-JNJFOC-20220944191

PATIENT
  Sex: Male

DRUGS (1)
  1. BENADRYL [Suspect]
     Active Substance: DIPHENHYDRAMINE HYDROCHLORIDE
     Indication: Euphoric mood
     Route: 065

REACTIONS (5)
  - Drug abuse [Unknown]
  - Hallucination, visual [Not Recovered/Not Resolved]
  - Loss of consciousness [Recovered/Resolved]
  - Urinary incontinence [Unknown]
  - Vomiting [Unknown]
